FAERS Safety Report 9325229 (Version 1)
Quarter: 2013Q2

REPORT INFORMATION
  Report Type: Report from Study
  Country: IT (occurrence: IT)
  Receive Date: 20130604
  Receipt Date: 20130604
  Transmission Date: 20140414
  Serious: Yes (Death, Other)
  Sender: FDA-Public Use
  Company Number: IT-ROCHE-1219891

PATIENT
  Age: 72 Year
  Sex: Male

DRUGS (7)
  1. RITUXIMAB [Suspect]
     Indication: CHRONIC LYMPHOCYTIC LEUKAEMIA
     Dosage: ON DAY 1 OF FIRST CYCLE
     Route: 065
  2. RITUXIMAB [Suspect]
     Dosage: FOR NEXT ALL FOUR CYCLES
     Route: 065
  3. BENDAMUSTINE [Suspect]
     Indication: CHRONIC LYMPHOCYTIC LEUKAEMIA
     Dosage: ON DAY 1 AND 2 GIVEN AS 1 HOUR INFUSION
     Route: 065
  4. CYTARABINE [Suspect]
     Indication: CHRONIC LYMPHOCYTIC LEUKAEMIA
     Dosage: FOR DAY 1 TO 3 GIVEN AS A 2-HR INFUSION STARTING 2 HR AFTER BENDAMUSTINE.
     Route: 065
  5. PARACETAMOL [Concomitant]
  6. DEXAMETHASONE [Concomitant]
     Route: 042
  7. ALLOPURINOL [Concomitant]

REACTIONS (2)
  - Pneumonia [Fatal]
  - Bone marrow failure [Recovered/Resolved]
